FAERS Safety Report 6634727-8 (Version None)
Quarter: 2010Q1

REPORT INFORMATION
  Report Type: 
  Country: None (occurrence: None)
  Receive Date: 20100315
  Receipt Date: 20100210
  Transmission Date: 20100710
  Serious: No
  Sender: FDA-Public Use
  Company Number: US-BAYER-201014693NA

PATIENT
  Age: 29 Year
  Sex: Male
  Weight: 107 kg

DRUGS (1)
  1. ULTRAVIST 370 [Suspect]
     Indication: ANGIOGRAM
     Dosage: TOTAL DAILY DOSE: 100 ML  UNIT DOSE: 100 ML
     Route: 042
     Dates: start: 20100210, end: 20100210

REACTIONS (4)
  - DYSPNOEA [None]
  - NASAL DISCOMFORT [None]
  - PRURITUS [None]
  - THROAT IRRITATION [None]
